FAERS Safety Report 21289821 (Version 1)
Quarter: 2022Q3

REPORT INFORMATION
  Report Type: Spontaneous
  Country: CN (occurrence: CN)
  Receive Date: 20220902
  Receipt Date: 20220902
  Transmission Date: 20221026
  Serious: Yes (Hospitalization, Other)
  Sender: FDA-Public Use
  Company Number: None

PATIENT
  Age: 56 Year
  Sex: Female
  Weight: 52 kg

DRUGS (16)
  1. CYCLOPHOSPHAMIDE [Suspect]
     Active Substance: CYCLOPHOSPHAMIDE
     Indication: Follicular lymphoma
     Dosage: 1.125G, QD, G-CHOP REGIMEN  (MICROPUMP, ALSO REPORTED AS INTRA-PUMP ), (DILUTED WITH 0.9% SODIUM CHL
     Route: 040
     Dates: start: 20220729, end: 20220729
  2. CYCLOPHOSPHAMIDE [Suspect]
     Active Substance: CYCLOPHOSPHAMIDE
     Dosage: UNK, DOSE-REDUCED, G-CHOP REGIMEN, MICROPUMP ALSO REPORTED AS INTRA PUMP
     Route: 040
     Dates: start: 20220819
  3. SODIUM CHLORIDE [Suspect]
     Active Substance: SODIUM CHLORIDE
     Indication: Medication dilution
     Dosage: 40ML, QD, G-CHOP REGIMEN, (MICROPUMP ALSO REPORTED AS INTRA-PUMP), (DILUTED WITH CYCLOPHOSPHAMIDE 1.
     Route: 040
     Dates: start: 20220729, end: 20220729
  4. SODIUM CHLORIDE [Suspect]
     Active Substance: SODIUM CHLORIDE
     Dosage: 40ML, QD, G-CHOP REGIMEN, (MICROPUMP ALSO REPORTED AS INTRA PUMP), (DILUTED WITH VINDESINE FOR INJEC
     Route: 040
     Dates: start: 20220729, end: 20220729
  5. SODIUM CHLORIDE [Suspect]
     Active Substance: SODIUM CHLORIDE
     Dosage: 100ML, QD, G-CHOP REGIMEN, (DILUTED WITH DEXAMETHASONE SODIUM PHOSPHATE INJECTION 15 MG), D1-5
     Route: 041
     Dates: start: 20220729, end: 20220802
  6. SODIUM CHLORIDE [Suspect]
     Active Substance: SODIUM CHLORIDE
     Dosage: QD, G-CHOP REGIMEN, (MICROPUMP ALSO REPORTED AS INTRA-PUMP), (DILUTED WITH CYCLOPHOSPHAMIDE)
     Route: 040
     Dates: start: 20220819
  7. SODIUM CHLORIDE [Suspect]
     Active Substance: SODIUM CHLORIDE
     Dosage: QD, G-CHOP REGIMEN, (MICROPUMP ALSO REPORTED AS INTRA PUMP), (DILUTED WITH VINDESINE FOR INJECTION)
     Route: 040
     Dates: start: 20220819
  8. SODIUM CHLORIDE [Suspect]
     Active Substance: SODIUM CHLORIDE
     Dosage: QD, G-CHOP REGIMEN, (DILUTED WITH DEXAMETHASONE SODIUM PHOSPHATE INJECTION)
     Route: 041
     Dates: start: 20220819
  9. DEXTROSE MONOHYDRATE [Suspect]
     Active Substance: DEXTROSE MONOHYDRATE
     Indication: Medication dilution
     Dosage: 250ML, QD, G-CHOP REGIMEN, (DILUTED WITH DOXORUBICIN LIPOSOME INJECTION 60 MG )
     Route: 041
     Dates: start: 20220729, end: 20220729
  10. DEXTROSE MONOHYDRATE [Suspect]
     Active Substance: DEXTROSE MONOHYDRATE
     Dosage: QD, G-CHOP REGIMEN, (DILUTED WITH DOXORUBICIN LIPOSOME INJECTION)
     Route: 041
     Dates: start: 20220819
  11. VINDESINE SULFATE [Suspect]
     Active Substance: VINDESINE SULFATE
     Indication: Follicular lymphoma
     Dosage: 4MG, QD, G-CHOP REGIMEN, (MICROPUMP ALSO REPORTED AS INTRA-PUMP),(DILUTED WITH 0.9% SODIUM CHLORIDE
     Route: 040
     Dates: start: 20220729, end: 20220729
  12. VINDESINE SULFATE [Suspect]
     Active Substance: VINDESINE SULFATE
     Dosage: QD, G-CHOP REGIMEN, (MICROPUMP ALSO REPORTED AS INTRA-PUMP),(DILUTED WITH 0.9% SODIUM CHLORIDE INJEC
     Route: 040
     Dates: start: 20220819
  13. DOXORUBICIN HYDROCHLORIDE [Suspect]
     Active Substance: DOXORUBICIN HYDROCHLORIDE
     Indication: Follicular lymphoma
     Dosage: 60MG, QD, G-CHOP REGIMEN,(DILUTED WITH 5% GLUCOSE INJECTION 250 ML )
     Route: 041
     Dates: start: 20220729, end: 20220729
  14. DOXORUBICIN HYDROCHLORIDE [Suspect]
     Active Substance: DOXORUBICIN HYDROCHLORIDE
     Dosage: QD, G-CHOP REGIMEN,(DILUTED WITH 5% GLUCOSE INJECTION)
     Route: 041
     Dates: start: 20220819
  15. DEXAMETHASONE SODIUM PHOSPHATE [Suspect]
     Active Substance: DEXAMETHASONE SODIUM PHOSPHATE
     Indication: Follicular lymphoma
     Dosage: 15MG, QD, G-CHOP REGIMEN, (DILUTED WITH 0.9% SODIUM CHLORIDE INJECTION 100 ML) D1-5
     Route: 041
     Dates: start: 20220729, end: 20220802
  16. DEXAMETHASONE SODIUM PHOSPHATE [Suspect]
     Active Substance: DEXAMETHASONE SODIUM PHOSPHATE
     Dosage: QD, G-CHOP REGIMEN, (DILUTED WITH 0.9% SODIUM CHLORIDE INJECTION)
     Route: 041
     Dates: start: 20220819

REACTIONS (1)
  - Myelosuppression [Recovering/Resolving]

NARRATIVE: CASE EVENT DATE: 20220809
